FAERS Safety Report 15598090 (Version 3)
Quarter: 2019Q1

REPORT INFORMATION
  Report Type: Spontaneous
  Country: US (occurrence: US)
  Receive Date: 20181108
  Receipt Date: 20190123
  Transmission Date: 20190417
  Serious: Yes (Hospitalization, Other)
  Sender: FDA-Public Use
  Company Number: US-ALKERMES INC.-ALK-2018-006061

PATIENT
  Age: 28 Year
  Sex: Male
  Weight: 77.98 kg

DRUGS (1)
  1. VIVITROL [Suspect]
     Active Substance: NALTREXONE
     Indication: ALCOHOLISM
     Dosage: 380 MG, QMO
     Route: 030
     Dates: start: 20180701

REACTIONS (4)
  - Brain injury [Not Recovered/Not Resolved]
  - Road traffic accident [Recovering/Resolving]
  - Disturbance in attention [Recovering/Resolving]
  - Loss of consciousness [Not Recovered/Not Resolved]

NARRATIVE: CASE EVENT DATE: 201809
